FAERS Safety Report 10934940 (Version 1)
Quarter: 2015Q1

REPORT INFORMATION
  Report Type: Spontaneous
  Country: FR (occurrence: FR)
  Receive Date: 20150320
  Receipt Date: 20150320
  Transmission Date: 20150721
  Serious: Yes (Death, Hospitalization)
  Sender: FDA-Public Use
  Company Number: FR-ASTRAZENECA-2015SE25202

PATIENT
  Age: 4284 Week
  Sex: Female

DRUGS (7)
  1. LASILIX [Concomitant]
     Active Substance: FUROSEMIDE
  2. CRESTOR [Suspect]
     Active Substance: ROSUVASTATIN CALCIUM
     Route: 048
     Dates: start: 20140919, end: 20141013
  3. CORTANCYL [Concomitant]
     Active Substance: PREDNISONE
  4. PERINDOPRIL/INDAPAMIDE [Concomitant]
     Indication: HYPERTENSION
  5. DELURSAN [Concomitant]
     Active Substance: URSODIOL
     Indication: CHOLANGITIS SCLEROSING
  6. INEXIUM [Suspect]
     Active Substance: ESOMEPRAZOLE
     Route: 048
     Dates: start: 20140828, end: 20141013
  7. GALVUS [Suspect]
     Active Substance: VILDAGLIPTIN
     Indication: DIABETES MELLITUS
     Route: 048
     Dates: start: 20140902, end: 20141013

REACTIONS (6)
  - Malnutrition [Unknown]
  - Agranulocytosis [Recovered/Resolved]
  - Erysipelas [Unknown]
  - General physical health deterioration [Unknown]
  - Hypokalaemia [Unknown]
  - Acute respiratory distress syndrome [Fatal]

NARRATIVE: CASE EVENT DATE: 20141013
